FAERS Safety Report 4347821-1 (Version None)
Quarter: 2004Q1

REPORT INFORMATION
  Report Type: 
  Country: None (occurrence: None)
  Receive Date: 20040325
  Receipt Date: 20040119
  Transmission Date: 20041129
  Serious: No
  Sender: FDA-Public Use
  Company Number: USA040157002

PATIENT
  Age: 86 Year

DRUGS (7)
  1. FORTEO [Suspect]
     Dates: start: 20040116
  2. SYNTHROID [Concomitant]
  3. OSCAL [Concomitant]
  4. ZINC [Concomitant]
  5. BLOOD PRESSURE MEDICATION [Concomitant]
  6. RHINOCORT [Concomitant]
  7. MULTIVITAMIN [Concomitant]

REACTIONS (3)
  - DIZZINESS [None]
  - MUSCLE CRAMP [None]
  - SKIN ODOUR ABNORMAL [None]
